FAERS Safety Report 6012625-0 (Version None)
Quarter: 2008Q4

REPORT INFORMATION
  Report Type: 
  Country: None (occurrence: None)
  Receive Date: 20081217
  Receipt Date: 20081119
  Transmission Date: 20090506
  Serious: Yes (Hospitalization)
  Sender: FDA-Public Use
  Company Number: 2008S1020831

PATIENT
  Age: 28 Year
  Sex: Female

DRUGS (2)
  1. CLOMIPRAMINE HYDROCHLORIDE [Suspect]
     Indication: PSYCHOTIC DISORDER
     Dosage: 50 MG; DAILY
     Dates: start: 20050501
  2. RISPERDAL [Suspect]
     Indication: PSYCHOTIC DISORDER
     Dosage: 1MG;DAILY
     Dates: start: 20050501, end: 20081026

REACTIONS (2)
  - DIABETIC KETOACIDOSIS [None]
  - DRUG INTERACTION [None]
